FAERS Safety Report 10364776 (Version 1)
Quarter: 2014Q3

REPORT INFORMATION
  Report Type: Spontaneous
  Country: US (occurrence: None)
  Receive Date: 20140804
  Receipt Date: 20140804
  Transmission Date: 20150326
  Serious: Yes (Disabling)
  Sender: FDA-Public Use
  Company Number: None

PATIENT
  Age: 72 Year
  Sex: Female
  Weight: 86.18 kg

DRUGS (1)
  1. LAMOTRIGINE. [Suspect]
     Active Substance: LAMOTRIGINE
     Indication: MAJOR DEPRESSION
     Dosage: 100 TO 150 MG/2 PILLS ONCE DAILY TAKEN BY MOUTH
     Route: 048
     Dates: start: 20140331, end: 20140801

REACTIONS (1)
  - Alopecia [None]

NARRATIVE: CASE EVENT DATE: 20140314
